FAERS Safety Report 4494571-7 (Version None)
Quarter: 2004Q4

REPORT INFORMATION
  Report Type: 
  Country: None (occurrence: None)
  Receive Date: 20041105
  Receipt Date: 20040102
  Transmission Date: 20050328
  Serious: Yes (Death)
  Sender: FDA-Public Use
  Company Number: US-MERCK-0401USA00096

PATIENT
  Age: 54 Year
  Sex: Male

DRUGS (7)
  1. VIOXX [Suspect]
     Indication: CHEST PAIN
     Route: 048
     Dates: start: 20010329, end: 20011223
  2. VIOXX [Suspect]
     Indication: PAIN IN EXTREMITY
     Route: 048
     Dates: start: 20010329, end: 20011223
  3. ULTRAM [Concomitant]
     Route: 048
     Dates: start: 20010329, end: 20011223
  4. FLEXERIL [Concomitant]
     Route: 048
     Dates: start: 20010320, end: 20011223
  5. TYLENOL [Concomitant]
     Route: 065
  6. ADVIL [Concomitant]
     Route: 065
  7. VALIUM [Concomitant]
     Route: 048
     Dates: start: 20010404, end: 20010404

REACTIONS (3)
  - ACUTE MYOCARDIAL INFARCTION [None]
  - INFLUENZA [None]
  - THERAPEUTIC RESPONSE DECREASED [None]
